FAERS Safety Report 26205776 (Version 1)
Quarter: 2025Q4

REPORT INFORMATION
  Report Type: Spontaneous
  Country: EU (occurrence: EU)
  Receive Date: 20251229
  Receipt Date: 20251229
  Transmission Date: 20260117
  Serious: Yes (Hospitalization, Other)
  Sender: TEVA
  Company Number: None

PATIENT
  Age: 18 Year
  Sex: Male

DRUGS (4)
  1. ALPRAZOLAM [Suspect]
     Active Substance: ALPRAZOLAM
     Indication: Product used for unknown indication
     Dosage: 5-6 MG/DAY
     Route: 048
     Dates: start: 2025
  2. ALCOHOL [Suspect]
     Active Substance: ALCOHOL
     Indication: Product used for unknown indication
     Dosage: ALCOHOL (DRINK), 1 BOTTLE OF HARD LIQUOR SEVERAL TIMES A WEEK
     Route: 048
  3. KETAMINE [Suspect]
     Active Substance: KETAMINE
     Indication: Product used for unknown indication
     Dosage: 5-6 G/DAY, KETAMINE NOT A MEDICINE (NO FURTHER INFORMATION)
     Route: 045
     Dates: start: 2022
  4. CANNABIS SATIVA SUBSP. INDICA TOP [Suspect]
     Active Substance: CANNABIS SATIVA SUBSP. INDICA TOP
     Indication: Product used for unknown indication
     Route: 065
     Dates: start: 2020

REACTIONS (5)
  - Substance use disorder [Not Recovered/Not Resolved]
  - Haematuria [Not Recovered/Not Resolved]
  - Pollakiuria [Not Recovered/Not Resolved]
  - Urinary incontinence [Not Recovered/Not Resolved]
  - Micturition urgency [Not Recovered/Not Resolved]
